FAERS Safety Report 4565983-8 (Version None)
Quarter: 2005Q1

REPORT INFORMATION
  Report Type: 
  Country: None (occurrence: None)
  Receive Date: 20050128
  Receipt Date: 20050119
  Transmission Date: 20050727
  Serious: Yes (Other)
  Sender: FDA-Public Use
  Company Number: 2004-11-1509

PATIENT
  Age: 80 Year
  Sex: Female

DRUGS (3)
  1. CELESTAN DEPOT ^LIKE CELESTONE SOLUSPAN^ [Suspect]
     Indication: BACK PAIN
     Dosage: INTRAMUSCULAR 1 DOSE
     Route: 030
  2. BUPIVACAINE HCL [Suspect]
     Indication: BACK PAIN
     Dosage: 1 ML 0.5% QD INTRAMUSCUL
     Route: 030
  3. VIOXX [Concomitant]
     Route: 048

REACTIONS (5)
  - BUTTOCK PAIN [None]
  - DEPRESSION [None]
  - INTENTION TREMOR [None]
  - NERVE INJURY [None]
  - SENSORIMOTOR DISORDER [None]
